FAERS Safety Report 4999322-5 (Version None)
Quarter: 2006Q2

REPORT INFORMATION
  Report Type: 
  Country: None (occurrence: None)
  Receive Date: 20060509
  Receipt Date: 20060509
  Transmission Date: 20061013
  Serious: Yes (Life-Threatening, Hospitalization)
  Sender: FDA-Public Use
  Company Number: None

PATIENT
  Age: 60 Year
  Sex: Male
  Weight: 80 kg

DRUGS (18)
  1. HEPARIN [Suspect]
     Indication: CARDIAC VALVE PROSTHESIS USER
     Dosage: IV DRIP
     Route: 041
  2. TYLENOL (CAPLET) [Concomitant]
  3. AMIODARONE [Concomitant]
  4. EPOGEN [Concomitant]
  5. FENTANYL [Concomitant]
  6. LASIX [Concomitant]
  7. HYDROCORTISONE [Concomitant]
  8. IBUPROFEN [Concomitant]
  9. LANSOPRAZOLE [Concomitant]
  10. LEVAQUIN [Concomitant]
  11. VERSED [Concomitant]
  12. SL NTG [Concomitant]
  13. PAROXETINE [Concomitant]
  14. ZOSYN [Concomitant]
  15. PROMETHASINE [Concomitant]
  16. THIAMINE [Concomitant]
  17. VANCOMYCIN [Concomitant]
  18. VORICONAZOLE [Concomitant]

REACTIONS (1)
  - GASTROINTESTINAL HAEMORRHAGE [None]
